FAERS Safety Report 20325437 (Version 3)
Quarter: 2022Q1

REPORT INFORMATION
  Report Type: Spontaneous
  Country: CA (occurrence: CA)
  Receive Date: 20220112
  Receipt Date: 20220318
  Transmission Date: 20220423
  Serious: Yes (Death)
  Sender: FDA-Public Use
  Company Number: CA-BIOGEN-2022BI01084553

PATIENT

DRUGS (1)
  1. TYSABRI [Suspect]
     Active Substance: NATALIZUMAB
     Indication: Relapsing-remitting multiple sclerosis
     Dosage: DATE OF MOST RECENT TYSABRI INFUSION PRIOR TO EVENT: 03-MAR-2014.
     Route: 065
     Dates: end: 20140303

REACTIONS (1)
  - Death [Fatal]

NARRATIVE: CASE EVENT DATE: 20220103
